FAERS Safety Report 15696395 (Version 2)
Quarter: 2018Q4

REPORT INFORMATION
  Report Type: Report from Study
  Country: CA (occurrence: CA)
  Receive Date: 20181206
  Receipt Date: 20181210
  Transmission Date: 20190205
  Serious: Yes (Other)
  Sender: FDA-Public Use
  Company Number: CA-HLSUS-2018-CA-001383

PATIENT
  Age: 58 Year
  Sex: Female
  Weight: 47.63 kg

DRUGS (2)
  1. DIVALPROEX [Concomitant]
     Active Substance: DIVALPROEX SODIUM
     Dosage: 875MG
     Route: 048
     Dates: start: 201102
  2. CLOZARIL [Suspect]
     Active Substance: CLOZAPINE
     Indication: SCHIZOAFFECTIVE DISORDER
     Dosage: 150MG
     Route: 048
     Dates: start: 20111128, end: 20180912

REACTIONS (3)
  - Neutrophil count decreased [Recovering/Resolving]
  - Abdominal discomfort [Recovering/Resolving]
  - Blood disorder [Unknown]

NARRATIVE: CASE EVENT DATE: 20180911
